FAERS Safety Report 9001903 (Version 2)
Quarter: 2013Q1

REPORT INFORMATION
  Report Type: Report from Study
  Country: CN (occurrence: CN)
  Receive Date: 20130107
  Receipt Date: 20130117
  Transmission Date: 20140127
  Serious: Yes (Hospitalization)
  Sender: FDA-Public Use
  Company Number: CN-ROCHE-1174290

PATIENT
  Age: 47 Year
  Sex: Female

DRUGS (4)
  1. TRASTUZUMAB [Suspect]
     Indication: BREAST CANCER
     Route: 065
     Dates: start: 20121018, end: 20121019
  2. TRASTUZUMAB [Suspect]
     Route: 065
     Dates: start: 20121025
  3. CAPECITABINE [Suspect]
     Indication: BREAST CANCER
     Route: 065
  4. BEVACIZUMAB [Suspect]
     Indication: BREAST CANCER
     Route: 065

REACTIONS (1)
  - Arrhythmia [Recovered/Resolved]
